FAERS Safety Report 18303773 (Version 1)
Quarter: 2020Q3

REPORT INFORMATION
  Report Type: Spontaneous
  Country: US (occurrence: US)
  Receive Date: 20200923
  Receipt Date: 20200923
  Transmission Date: 20201103
  Serious: No
  Sender: FDA-Public Use
  Company Number: US-SCILEX PHARMACEUTICALS INC.-2020SCX00028

PATIENT
  Sex: Female
  Weight: 62.59 kg

DRUGS (4)
  1. UNSPECIFIED THYROID MEDICATION [Concomitant]
     Active Substance: UNSPECIFIED INGREDIENT
  2. ZTLIDO [Suspect]
     Active Substance: LIDOCAINE
     Indication: NECK PAIN
     Dosage: 2 DOSAGE UNITS, 1X/DAY
     Route: 061
     Dates: start: 202003, end: 20200710
  3. ZTLIDO [Suspect]
     Active Substance: LIDOCAINE
     Indication: MUSCULOSKELETAL PAIN
     Dosage: 1 DOSAGE UNITS, 1X/DAY
     Route: 061
     Dates: start: 202003, end: 20200710
  4. UNSPECIFIED HIGH BLOOD PRESSURE MEDICATION [Concomitant]
     Active Substance: UNSPECIFIED INGREDIENT

REACTIONS (2)
  - Application site erythema [Recovering/Resolving]
  - Product use in unapproved indication [Recovered/Resolved]

NARRATIVE: CASE EVENT DATE: 2020
